FAERS Safety Report 6018181 (Version 24)
Quarter: 2015Q1

REPORT INFORMATION
  Report Type: Spontaneous
  Country: US (occurrence: US)
  Receive Date: 20041103
  Receipt Date: 20150204
  Transmission Date: 20150721
  Serious: Yes (Disabling)
  Sender: FDA-Public Use
  Company Number: US-ROCHE-384601

PATIENT
  Age: 19 Year
  Sex: Female
  Weight: 63.5 kg

DRUGS (4)
  1. DEPO-PROVERA [Concomitant]
     Active Substance: MEDROXYPROGESTERONE ACETATE
     Indication: CONTRACEPTION
     Route: 065
  2. ACCUTANE [Suspect]
     Active Substance: ISOTRETINOIN
     Dosage: 40 MG ALT WITH 80 MG QD
     Route: 048
  3. AMOXICILLIN. [Concomitant]
     Active Substance: AMOXICILLIN
     Indication: NASOPHARYNGITIS
     Route: 048
  4. ACCUTANE [Suspect]
     Active Substance: ISOTRETINOIN
     Indication: ACNE
     Route: 048
     Dates: start: 20011221, end: 20020119

REACTIONS (30)
  - Colitis [Unknown]
  - Epistaxis [Unknown]
  - Haematochezia [Unknown]
  - Diarrhoea [Unknown]
  - Faecal incontinence [Unknown]
  - Vomiting [Unknown]
  - Mucous stools [Unknown]
  - Colitis ulcerative [Unknown]
  - Proctitis ulcerative [Unknown]
  - Haemorrhoids [Unknown]
  - Nervousness [Unknown]
  - Headache [Unknown]
  - Fatigue [Unknown]
  - Constipation [Unknown]
  - Iron deficiency anaemia [Unknown]
  - Gastric disorder [Unknown]
  - Bowel movement irregularity [Unknown]
  - Weight decreased [Unknown]
  - Gastrointestinal disorder [Unknown]
  - Intestinal haemorrhage [Unknown]
  - Inflammatory bowel disease [Unknown]
  - Agitation [Unknown]
  - Rectal haemorrhage [Unknown]
  - Abdominal pain [Unknown]
  - Flatulence [Unknown]
  - Defaecation urgency [Unknown]
  - Colitis [Unknown]
  - Arthralgia [Unknown]
  - Internal injury [Unknown]
  - Irritable bowel syndrome [Unknown]

NARRATIVE: CASE EVENT DATE: 20020216
